FAERS Safety Report 11598675 (Version 1)
Quarter: 2015Q3

REPORT INFORMATION
  Report Type: Spontaneous
  Country: US (occurrence: US)
  Receive Date: 20150916
  Receipt Date: 20150916
  Transmission Date: 20151125
  Serious: No
  Sender: FDA-Public Use
  Company Number: US-ELI_LILLY_AND_COMPANY-US200712001754

PATIENT
  Age: 67 Year
  Sex: Male
  Weight: 66.21 kg

DRUGS (13)
  1. POTASSIUM [Concomitant]
     Active Substance: POTASSIUM
  2. PREVACID [Concomitant]
     Active Substance: LANSOPRAZOLE
  3. ASA [Concomitant]
     Active Substance: ASPIRIN
  4. OXYCODONE [Concomitant]
     Active Substance: OXYCODONE
  5. LISINOPRIL. [Concomitant]
     Active Substance: LISINOPRIL
  6. TESTOSTERONE. [Concomitant]
     Active Substance: TESTOSTERONE
  7. INDAPAMIDE. [Concomitant]
     Active Substance: INDAPAMIDE
  8. NASONEX [Concomitant]
     Active Substance: MOMETASONE FUROATE
  9. FORTEO [Suspect]
     Active Substance: TERIPARATIDE
     Indication: OSTEOPOROSIS
     Dosage: 20 UG, DAILY (1/D)
     Dates: start: 20071130, end: 200802
  10. LIBRIUM [Concomitant]
     Active Substance: CHLORDIAZEPOXIDE HYDROCHLORIDE
  11. TIZANIDINE. [Concomitant]
     Active Substance: TIZANIDINE
  12. DILTIAZEM [Concomitant]
     Active Substance: DILTIAZEM
  13. DOCUSATE [Concomitant]
     Active Substance: DOCUSATE

REACTIONS (12)
  - Palpitations [Recovering/Resolving]
  - Musculoskeletal stiffness [Recovering/Resolving]
  - Nausea [Recovering/Resolving]
  - Arrhythmia [Recovering/Resolving]
  - Asthenia [Not Recovered/Not Resolved]
  - Anxiety [Not Recovered/Not Resolved]
  - Constipation [Recovering/Resolving]
  - Fatigue [Not Recovered/Not Resolved]
  - Arthralgia [Recovering/Resolving]
  - Back pain [Recovering/Resolving]
  - Gait disturbance [Recovering/Resolving]
  - Poor quality sleep [Not Recovered/Not Resolved]

NARRATIVE: CASE EVENT DATE: 2007
